FAERS Safety Report 18157035 (Version 1)
Quarter: 2020Q3

REPORT INFORMATION
  Report Type: Spontaneous
  Country: US (occurrence: US)
  Receive Date: 20200817
  Receipt Date: 20200817
  Transmission Date: 20201103
  Serious: No
  Sender: FDA-Public Use
  Company Number: None

PATIENT
  Age: 29 Year
  Sex: Female

DRUGS (1)
  1. DDAVP [Suspect]
     Active Substance: DESMOPRESSIN ACETATE
     Route: 045
     Dates: start: 20181227, end: 20200813

REACTIONS (4)
  - Nausea [None]
  - Recalled product administered [None]
  - Headache [None]
  - Lethargy [None]

NARRATIVE: CASE EVENT DATE: 20200813
